FAERS Safety Report 12764805 (Version 1)
Quarter: 2016Q3

REPORT INFORMATION
  Report Type: Report from Study
  Country: US (occurrence: US)
  Receive Date: 20160921
  Receipt Date: 20160921
  Transmission Date: 20161109
  Serious: Yes (Hospitalization)
  Sender: FDA-Public Use
  Company Number: US-ASTRAZENECA-2016SE97557

PATIENT
  Sex: Female

DRUGS (20)
  1. AZD5363 [Suspect]
     Active Substance: INVESTIGATIONAL PRODUCT
     Indication: ENDOMETRIAL ADENOCARCINOMA
     Dosage: TAKE 2 TABLETS EVERY 12 HOURS ON A 4 DAYS ON, 3 DAYS OFF SCHEDULE
     Route: 048
     Dates: end: 20160904
  2. POTASSIUM CHLORIDE. [Concomitant]
     Active Substance: POTASSIUM CHLORIDE
     Route: 048
     Dates: end: 20160912
  3. LASIX [Concomitant]
     Active Substance: FUROSEMIDE
     Route: 048
     Dates: end: 20160912
  4. HYDROCHLOROTHIAZIDE. [Suspect]
     Active Substance: HYDROCHLOROTHIAZIDE
     Indication: PRODUCT USED FOR UNKNOWN INDICATION
     Route: 065
  5. NORCO [Concomitant]
     Active Substance: ACETAMINOPHEN\HYDROCODONE BITARTRATE
     Indication: PAIN
     Dosage: 1 TABLET EVERY SIX HOURS AS NEEDED
     Route: 048
  6. COMPAZINE [Concomitant]
     Active Substance: PROCHLORPERAZINE MALEATE
     Indication: NAUSEA
     Route: 048
  7. VITAMIN B12 [Concomitant]
     Active Substance: CYANOCOBALAMIN
     Dosage: 1 TABLET DAILY
     Route: 048
     Dates: end: 20160907
  8. ALEVE [Concomitant]
     Active Substance: NAPROXEN SODIUM
     Dosage: 2 TABLETS AS NEEDED
     Route: 048
     Dates: end: 20160904
  9. COMPAZINE [Concomitant]
     Active Substance: PROCHLORPERAZINE MALEATE
     Indication: VOMITING
     Route: 048
  10. ZOFRAN [Concomitant]
     Active Substance: ONDANSETRON HYDROCHLORIDE
     Indication: NAUSEA
     Route: 048
  11. SINGULAIR [Concomitant]
     Active Substance: MONTELUKAST SODIUM
     Dosage: 10 MG
     Route: 048
  12. LYRICA [Concomitant]
     Active Substance: PREGABALIN
     Route: 048
     Dates: end: 20160909
  13. AZD2281 [Suspect]
     Active Substance: OLAPARIB
     Indication: ENDOMETRIAL ADENOCARCINOMA
     Dosage: 3 TABLETS (300 MG TOTAL) BY MOUTH EVERY 12 (TWELVE) HOURS FOR 28 DAYS.
     Route: 048
     Dates: end: 20160909
  14. IMODIUM A-D [Concomitant]
     Active Substance: LOPERAMIDE HYDROCHLORIDE
     Dosage: 2 TABLETS AS NEEDED
     Route: 048
  15. VITAMIN B-6 [Concomitant]
     Active Substance: PYRIDOXINE
     Dosage: 1 TABLET DAILY
     Route: 048
     Dates: end: 20160909
  16. XARELTO [Concomitant]
     Active Substance: RIVAROXABAN
     Route: 048
     Dates: end: 20160911
  17. MULTIVITAMIN [Suspect]
     Active Substance: VITAMINS
     Indication: PRODUCT USED FOR UNKNOWN INDICATION
     Dosage: 1 TABLET DAILY
     Route: 048
     Dates: end: 20160907
  18. ALBUTEROL. [Concomitant]
     Active Substance: ALBUTEROL
     Indication: DYSPNOEA
     Dosage: INHALE 2 PUFFS BY MOUTH EVERY 6 (SIX) HOURS AS NEEDED
     Route: 055
     Dates: end: 20160911
  19. LOMOTIL [Concomitant]
     Active Substance: ATROPINE SULFATE\DIPHENOXYLATE HYDROCHLORIDE
     Indication: DIARRHOEA
     Dosage: 1 TABLET 2 TIMES A DAY
     Route: 048
     Dates: end: 20160907
  20. ZOFRAN [Concomitant]
     Active Substance: ONDANSETRON HYDROCHLORIDE
     Indication: PAIN
     Route: 048

REACTIONS (1)
  - Hypercalcaemia [Unknown]

NARRATIVE: CASE EVENT DATE: 20160908
